FAERS Safety Report 17719306 (Version 3)
Quarter: 2020Q3

REPORT INFORMATION
  Report Type: Spontaneous
  Country: DE (occurrence: DE)
  Receive Date: 20200428
  Receipt Date: 20200706
  Transmission Date: 20201102
  Serious: Yes (Other)
  Sender: FDA-Public Use
  Company Number: DE-MYLANLABS-2020M1041206

PATIENT
  Age: 48 Year
  Sex: Male
  Weight: 120 kg

DRUGS (2)
  1. VALSARTAN MYLAN [Suspect]
     Active Substance: VALSARTAN
     Indication: HYPERTENSION
     Dosage: 160 MILLIGRAM, BID, (TWICE DAILY)
  2. AMLODIPINE [Concomitant]
     Active Substance: AMLODIPINE BESYLATE
     Dosage: 5 MILLIGRAM, QD, (ONCE DAILY), (STAART APPROX 2009)
     Route: 048

REACTIONS (4)
  - Recalled product administered [Unknown]
  - Fear of disease [Not Recovered/Not Resolved]
  - Mental impairment [Unknown]
  - Quality of life decreased [Not Recovered/Not Resolved]
